FAERS Safety Report 18641523 (Version 1)
Quarter: 2020Q4

REPORT INFORMATION
  Report Type: Spontaneous
  Country: US (occurrence: US)
  Receive Date: 20201218
  Receipt Date: 20201218
  Transmission Date: 20210114
  Serious: Yes (Hospitalization, Other)
  Sender: FDA-Public Use
  Company Number: None

PATIENT
  Age: 68 Year
  Sex: Male
  Weight: 92 kg

DRUGS (4)
  1. PIPERACILLIN/TAZOBACTAM [Suspect]
     Active Substance: PIPERACILLIN SODIUM\TAZOBACTAM SODIUM
     Indication: INFECTION
     Route: 042
     Dates: start: 20201207, end: 20201209
  2. PIPERACILLIN/TAZOBACTAM [Suspect]
     Active Substance: PIPERACILLIN SODIUM\TAZOBACTAM SODIUM
     Indication: ABSCESS LIMB
     Route: 042
     Dates: start: 20201207, end: 20201209
  3. VANCOMYCIN (VANCOMYCIN HCL 1GM/VIL INJ) [Suspect]
     Active Substance: VANCOMYCIN HYDROCHLORIDE
     Indication: INFECTION
     Route: 042
     Dates: start: 20201207, end: 20201209
  4. VANCOMYCIN (VANCOMYCIN HCL 1GM/VIL INJ) [Suspect]
     Active Substance: VANCOMYCIN HYDROCHLORIDE
     Indication: ABSCESS LIMB
     Route: 042
     Dates: start: 20201207, end: 20201209

REACTIONS (5)
  - Acute kidney injury [None]
  - Tubulointerstitial nephritis [None]
  - Blood creatinine increased [None]
  - Blood urea increased [None]
  - Contrast media toxicity [None]

NARRATIVE: CASE EVENT DATE: 20201211
